FAERS Safety Report 4352466-3 (Version None)
Quarter: 2004Q2

REPORT INFORMATION
  Report Type: 
  Country: None (occurrence: None)
  Receive Date: 20040428
  Receipt Date: 20040416
  Transmission Date: 20050107
  Serious: Yes (Hospitalization)
  Sender: FDA-Public Use
  Company Number: S04-UKI-01735-01

PATIENT
  Age: 39 Year
  Sex: Male

DRUGS (3)
  1. CIPRALEX (ESCITALOPRAM) [Suspect]
     Dosage: 10 MG QD PO
     Route: 048
     Dates: start: 20040123
  2. ZOLPIDEM [Concomitant]
  3. OXAZEPAM [Concomitant]

REACTIONS (1)
  - CLONIC CONVULSION [None]
